FAERS Safety Report 10691492 (Version 2)
Quarter: 2015Q1

REPORT INFORMATION
  Report Type: Spontaneous
  Country: TW (occurrence: TW)
  Receive Date: 20150105
  Receipt Date: 20150119
  Transmission Date: 20150720
  Serious: Yes (Death, Other)
  Sender: FDA-Public Use
  Company Number: TW-ASTELLAS-2015US000196

PATIENT
  Age: 55 Year
  Sex: Male

DRUGS (1)
  1. PROGRAF [Suspect]
     Active Substance: TACROLIMUS\TACROLIMUS ANHYDROUS
     Indication: LIVER TRANSPLANT
     Dosage: 0.75 MG, TWICE DAILY
     Route: 048
     Dates: start: 2010, end: 2014

REACTIONS (2)
  - Infection [Fatal]
  - Intussusception [Fatal]

NARRATIVE: CASE EVENT DATE: 2014
